FAERS Safety Report 25437994 (Version 1)
Quarter: 2025Q2

REPORT INFORMATION
  Report Type: Spontaneous
  Country: US (occurrence: US)
  Receive Date: 20250616
  Receipt Date: 20250616
  Transmission Date: 20250716
  Serious: Yes (Hospitalization, Other)
  Sender: Haleon PLC
  Company Number: US-HALEON-2246262

PATIENT
  Age: 63 Year
  Sex: Female

DRUGS (16)
  1. TUMS [Suspect]
     Active Substance: CALCIUM CARBONATE
     Indication: Dyspepsia
  2. TUMS [Suspect]
     Active Substance: CALCIUM CARBONATE
     Indication: Dyspepsia
  3. TYVASO DPI [Suspect]
     Active Substance: TREPROSTINIL
     Indication: Pulmonary arterial hypertension
  4. TYVASO DPI [Suspect]
     Active Substance: TREPROSTINIL
     Indication: Lung disorder
  5. TYVASO DPI [Suspect]
     Active Substance: TREPROSTINIL
     Indication: Hypoxia
  6. UPTRAVI [Suspect]
     Active Substance: SELEXIPAG
     Indication: Pulmonary arterial hypertension
  7. UPTRAVI [Suspect]
     Active Substance: SELEXIPAG
     Indication: Lung disorder
     Dosage: TAKING 3- 200 ?G
  8. UPTRAVI [Suspect]
     Active Substance: SELEXIPAG
     Indication: Hypoxia
  9. OFEV [Suspect]
     Active Substance: NINTEDANIB
     Indication: Product used for unknown indication
  10. TREPROSTINIL [Suspect]
     Active Substance: TREPROSTINIL
     Indication: Pulmonary arterial hypertension
     Dosage: ROA: INHALATION
  11. TREPROSTINIL [Suspect]
     Active Substance: TREPROSTINIL
     Indication: Lung disorder
     Dosage: ROA: INHALATION
  12. TREPROSTINIL [Suspect]
     Active Substance: TREPROSTINIL
     Indication: Hypoxia
  13. ADCIRCA [Concomitant]
     Active Substance: TADALAFIL
     Indication: Product used for unknown indication
  14. LASIX [Concomitant]
     Active Substance: FUROSEMIDE
     Indication: Product used for unknown indication
  15. PANTOPRAZOLE [Concomitant]
     Active Substance: PANTOPRAZOLE
     Indication: Product used for unknown indication
  16. IMODIUM [Concomitant]
     Active Substance: LOPERAMIDE HYDROCHLORIDE
     Indication: Product used for unknown indication

REACTIONS (4)
  - Respiratory distress [Unknown]
  - Therapy partial responder [Unknown]
  - Drug effective for unapproved indication [Unknown]
  - Product use in unapproved indication [Unknown]

NARRATIVE: CASE EVENT DATE: 20250601
